FAERS Safety Report 8837643 (Version 2)
Quarter: 2012Q4

REPORT INFORMATION
  Report Type: 
  Country: BR (occurrence: BR)
  Receive Date: 20121012
  Receipt Date: 20121016
  Transmission Date: 20130627
  Serious: Yes (Hospitalization, Other)
  Sender: FDA-Public Use
  Company Number: BR-JNJFOC-20121003482

PATIENT
  Age: 57 Year
  Sex: Male
  Weight: 90 kg

DRUGS (1)
  1. DUROGESIC D-TRANS [Suspect]
     Indication: PAIN
     Route: 062
     Dates: start: 2008, end: 2010

REACTIONS (6)
  - Respiratory arrest [Unknown]
  - Intentional overdose [Recovered/Resolved]
  - Hypertension [Unknown]
  - Inappropriate schedule of drug administration [Unknown]
  - Pruritus genital [Not Recovered/Not Resolved]
  - Fungal skin infection [Unknown]
